FAERS Safety Report 9632461 (Version 2)
Quarter: 2014Q1

REPORT INFORMATION
  Report Type: Spontaneous
  Country: US (occurrence: US)
  Receive Date: 20131018
  Receipt Date: 20140129
  Transmission Date: 20141002
  Serious: No
  Sender: FDA-Public Use
  Company Number: US-BAYER-2013-124579

PATIENT
  Age: 82 Year
  Sex: Female
  Weight: 71 kg

DRUGS (18)
  1. ALEVE CAPLET [Suspect]
     Indication: PAIN IN EXTREMITY
     Dosage: 2 DF, QD
  2. ALEVE CAPLET [Suspect]
     Indication: MUSCLE SPASMS
  3. BAYER ASPIRIN REGIMEN ADULT LOW STRENGTH [Suspect]
     Indication: CARDIAC DISORDER
     Dosage: UNK UNK, QD
     Dates: start: 2013
  4. BAYER ASPIRIN REGIMEN ADULT LOW STRENGTH [Suspect]
     Indication: ANTICOAGULANT THERAPY
  5. GABAPENTIN [Suspect]
     Indication: MUSCLE SPASMS
     Dosage: 300 MG, QD
     Route: 048
  6. GABAPENTIN [Suspect]
     Indication: PAIN IN EXTREMITY
  7. NORVASC [Concomitant]
     Indication: HYPERTENSION
  8. PROTONIX [Concomitant]
     Indication: GASTROOESOPHAGEAL REFLUX DISEASE
  9. ATENOLOL [Concomitant]
  10. KLOR-CON [Concomitant]
  11. CENTRUM SILVER [Concomitant]
  12. IMODIUM [Concomitant]
  13. MAGNESIUM [Concomitant]
  14. MECLIZINE [Concomitant]
  15. COQ10 [Concomitant]
  16. CITRACAL CALCIUM + D3 GUMMIES [Concomitant]
  17. VITAMIN B12 [Concomitant]
  18. KRILL OIL [Concomitant]

REACTIONS (2)
  - Muscle spasms [Not Recovered/Not Resolved]
  - Dyspepsia [None]
